FAERS Safety Report 6922124-7 (Version None)
Quarter: 2010Q3

REPORT INFORMATION
  Report Type: 
  Country: None (occurrence: None)
  Receive Date: 20100812
  Receipt Date: 20100730
  Transmission Date: 20110219
  Serious: Yes (Death, Other)
  Sender: FDA-Public Use
  Company Number: US-ELI_LILLY_AND_COMPANY-US201007007807

PATIENT
  Sex: Male

DRUGS (6)
  1. EFFIENT [Suspect]
     Dosage: 10 MG, UNKNOWN
     Dates: start: 20100715
  2. ASPIRIN [Concomitant]
     Dosage: 325 MG, UNK
  3. MIDODRINE HYDROCHLORIDE [Concomitant]
     Dosage: 5 MG, 3/D
  4. RANEXA [Concomitant]
     Dosage: 500 MG, 2/D
  5. MEGACE [Concomitant]
     Dosage: 40 MG, 2/D
  6. PROTONIX [Concomitant]
     Dosage: 40 MG, DAILY (1/D)

REACTIONS (1)
  - CARDIOGENIC SHOCK [None]
